FAERS Safety Report 5450322-0 (Version None)
Quarter: 2007Q3

REPORT INFORMATION
  Report Type: 
  Country: None (occurrence: None)
  Receive Date: 20070912
  Receipt Date: 20070901
  Transmission Date: 20080115
  Serious: Yes (Other)
  Sender: FDA-Public Use
  Company Number: US-PFIZER INC-2007065892

PATIENT
  Sex: Female
  Weight: 113.4 kg

DRUGS (10)
  1. CHANTIX [Suspect]
     Indication: SMOKING CESSATION THERAPY
  2. IBUPROFEN [Suspect]
  3. METFORMIN HCL [Concomitant]
  4. GLIPIZIDE [Concomitant]
  5. LIPITOR [Concomitant]
  6. ZETIA [Concomitant]
  7. LISINOPRIL [Concomitant]
     Indication: BLOOD PRESSURE
  8. NEURONTIN [Concomitant]
  9. OXYCODONE HCL [Concomitant]
  10. VICODIN [Concomitant]

REACTIONS (3)
  - BLOOD GLUCOSE INCREASED [None]
  - DRUG HYPERSENSITIVITY [None]
  - VISION BLURRED [None]
